FAERS Safety Report 21449126 (Version 6)
Quarter: 2023Q1

REPORT INFORMATION
  Report Type: Report from Study
  Country: CA (occurrence: CA)
  Receive Date: 20221013
  Receipt Date: 20230314
  Transmission Date: 20230417
  Serious: Yes (Hospitalization)
  Sender: FDA-Public Use
  Company Number: CA-CHIESI-2022CHF05188

PATIENT
  Age: 65 Year
  Sex: Female
  Weight: 45.7 kg

DRUGS (3)
  1. DEFERIPRONE [Suspect]
     Active Substance: DEFERIPRONE
     Indication: Thalassaemia
     Dosage: 4000 MILLIGRAM
     Route: 048
     Dates: start: 20210811
  2. DEFERIPRONE [Suspect]
     Active Substance: DEFERIPRONE
     Indication: Anaemia
     Dosage: 1500 MILLIGRAM, QD
     Route: 048
  3. DEFERIPRONE [Suspect]
     Active Substance: DEFERIPRONE
     Dosage: 3000 MILLIGRAM
     Route: 048

REACTIONS (4)
  - Pneumonia [Unknown]
  - Cardiac arrest [Unknown]
  - White blood cell count decreased [Recovering/Resolving]
  - Off label use [Recovered/Resolved]

NARRATIVE: CASE EVENT DATE: 20220708
